FAERS Safety Report 19008241 (Version 3)
Quarter: 2021Q1

REPORT INFORMATION
  Report Type: Spontaneous
  Country: NL (occurrence: NL)
  Receive Date: 20210316
  Receipt Date: 20210318
  Transmission Date: 20210420
  Serious: Yes (Other)
  Sender: FDA-Public Use
  Company Number: NL-JNJFOC-20210325810

PATIENT
  Age: 79 Year
  Sex: Female
  Weight: 61 kg

DRUGS (5)
  1. PARACETAMOL [Concomitant]
     Active Substance: ACETAMINOPHEN
     Dosage: MELTING TABLET, 500 MG (MILLIGRAM)
  2. LORAZEPAM. [Concomitant]
     Active Substance: LORAZEPAM
  3. MACROGOL [Concomitant]
     Active Substance: POLYETHYLENE GLYCOLS
     Dosage: SALTS POWDER FOR DRINK
  4. HALDOL [Suspect]
     Active Substance: HALOPERIDOL
     Indication: PSYCHOTIC BEHAVIOUR
     Dosage: 2 DD 15 DROPS
     Route: 065
     Dates: start: 202101
  5. COVID?19 VACCINE NOS. [Suspect]
     Active Substance: COVID-19 VACCINE NOS
     Indication: COVID-19 IMMUNISATION
     Route: 065
     Dates: start: 20210227

REACTIONS (3)
  - Aphasia [Recovering/Resolving]
  - Hemiparesis [Recovering/Resolving]
  - Dysphagia [Recovering/Resolving]

NARRATIVE: CASE EVENT DATE: 20210227
